FAERS Safety Report 18281517 (Version 2)
Quarter: 2020Q4

REPORT INFORMATION
  Report Type: Spontaneous
  Country: US (occurrence: US)
  Receive Date: 20200918
  Receipt Date: 20201105
  Transmission Date: 20210113
  Serious: No
  Sender: FDA-Public Use
  Company Number: US-ASTRAZENECA-2020SF17765

PATIENT
  Sex: Female
  Weight: 90.7 kg

DRUGS (1)
  1. FASENRA [Suspect]
     Active Substance: BENRALIZUMAB
     Indication: ASTHMA
     Dosage: UKNOWN, EVERY EIGHT WEEKS
     Route: 058

REACTIONS (4)
  - Oxygen consumption decreased [Unknown]
  - Dyspnoea [Unknown]
  - Drug ineffective [Unknown]
  - Mental impairment [Unknown]
